FAERS Safety Report 8002667-8 (Version None)
Quarter: 2011Q4

REPORT INFORMATION
  Report Type: 
  Country: None (occurrence: None)
  Receive Date: 20111222
  Receipt Date: 20111215
  Transmission Date: 20120403
  Serious: Yes (Hospitalization)
  Sender: FDA-Public Use
  Company Number: JP-NOVOPROD-335638

PATIENT

DRUGS (3)
  1. MAGMITT [Suspect]
     Indication: PRODUCT USED FOR UNKNOWN INDICATION
  2. BASEN [Concomitant]
  3. NOVORAPID 30 MIX CHU [Suspect]
     Indication: TYPE 1 DIABETES MELLITUS
     Route: 058

REACTIONS (1)
  - ASPARTATE AMINOTRANSFERASE INCREASED [None]
